FAERS Safety Report 15738152 (Version 2)
Quarter: 2018Q4

REPORT INFORMATION
  Report Type: Spontaneous
  Country: IT (occurrence: IT)
  Receive Date: 20181219
  Receipt Date: 20181228
  Transmission Date: 20190205
  Serious: Yes (Hospitalization)
  Sender: FDA-Public Use
  Company Number: IT-TEVA-2018-IT-987689

PATIENT
  Age: 40 Year
  Sex: Female

DRUGS (3)
  1. RIVOTRIL [Concomitant]
     Active Substance: CLONAZEPAM
     Route: 048
  2. CIPRALEX [Suspect]
     Active Substance: ESCITALOPRAM OXALATE
     Indication: EPILEPSY
     Route: 048
     Dates: start: 20180530, end: 20180630
  3. LAMICTAL [Concomitant]
     Active Substance: LAMOTRIGINE
     Route: 048

REACTIONS (2)
  - Sensory disturbance [Recovering/Resolving]
  - Flight of ideas [Recovering/Resolving]

NARRATIVE: CASE EVENT DATE: 20180630
